FAERS Safety Report 4543473-6 (Version None)
Quarter: 2005Q1

REPORT INFORMATION
  Report Type: 
  Country: None (occurrence: None)
  Receive Date: 20050103
  Receipt Date: 20040408
  Transmission Date: 20050727
  Serious: Yes (Hospitalization, Disabling, Other)
  Sender: FDA-Public Use
  Company Number: US-GLAXOSMITHKLINE-A0506565B

PATIENT
  Age: 41 Year
  Sex: Female

DRUGS (10)
  1. ACTIFED [Suspect]
     Dates: start: 19930301
  2. ALKA SELTZER COLD [Suspect]
     Dates: start: 19930201
  3. SUDAFED 12 HOUR [Suspect]
     Dates: start: 19930301
  4. COMTREX (USA) [Suspect]
  5. CORICIDIN [Suspect]
  6. HALLS MENTHOLYPTUS [Suspect]
  7. TYLENOL [Suspect]
  8. CARDIZEM [Concomitant]
  9. VASOTEC [Concomitant]
  10. CONTAC 12-HOUR CAPLETS, MAXIMUM STRENGTH [Concomitant]
     Route: 048

REACTIONS (33)
  - ACCELERATED HYPERTENSION [None]
  - ACTIVITIES OF DAILY LIVING IMPAIRED [None]
  - ANEURYSM [None]
  - BLOOD PRESSURE INCREASED [None]
  - BRAIN OEDEMA [None]
  - CEREBRAL HAEMATOMA [None]
  - CEREBRAL HAEMORRHAGE [None]
  - CEREBRAL VENTRICLE DILATATION [None]
  - CLONUS [None]
  - CONVULSION [None]
  - DISTRACTIBILITY [None]
  - EMBOLIC STROKE [None]
  - FACIAL PARESIS [None]
  - FATIGUE [None]
  - GAIT DISTURBANCE [None]
  - HEADACHE [None]
  - HEMIPARESIS [None]
  - HEMIPLEGIA [None]
  - HYPOAESTHESIA [None]
  - HYPOREFLEXIA [None]
  - HYPOTONIA [None]
  - IMPULSIVE BEHAVIOUR [None]
  - INJURY [None]
  - IRRITABILITY [None]
  - PAIN [None]
  - RESTLESSNESS [None]
  - RETINOPATHY HYPERTENSIVE [None]
  - SENSORY LOSS [None]
  - SPEECH DISORDER [None]
  - TREATMENT NONCOMPLIANCE [None]
  - TRENDELENBURG'S SYMPTOM [None]
  - WALKING AID USER [None]
  - WHEELCHAIR USER [None]
